FAERS Safety Report 9581027 (Version 2)
Quarter: 2013Q4

REPORT INFORMATION
  Report Type: Spontaneous
  Country: IT (occurrence: IT)
  Receive Date: 20131002
  Receipt Date: 20131010
  Transmission Date: 20140711
  Serious: Yes (Hospitalization)
  Sender: FDA-Public Use
  Company Number: IT-TEVA-434707ISR

PATIENT
  Age: 50 Year
  Sex: Male

DRUGS (4)
  1. PAROXETINA [Suspect]
     Indication: DEPRESSION
     Dosage: 20 MILLIGRAM DAILY;
     Route: 048
     Dates: start: 20130909, end: 20130909
  2. REMERON 30MG [Suspect]
     Indication: DEPRESSION
     Dosage: 30 MILLIGRAM DAILY;
     Route: 048
     Dates: start: 20130909, end: 20130909
  3. TAVOR 2,5MG [Suspect]
     Indication: DRUG ABUSE
     Dosage: 15 MILLIGRAM DAILY;
     Route: 048
     Dates: start: 20130909, end: 20130909
  4. SEROQUEL 200MG [Suspect]
     Indication: DRUG ABUSE
     Dosage: 800 MILLIGRAM DAILY;
     Route: 048
     Dates: start: 20130909, end: 20130909

REACTIONS (3)
  - Insomnia [Recovered/Resolved]
  - Asthenia [Recovered/Resolved]
  - Drug abuse [Recovered/Resolved]
